FAERS Safety Report 6216251-X (Version None)
Quarter: 2009Q2

REPORT INFORMATION
  Report Type: 
  Country: None (occurrence: None)
  Receive Date: 20090605
  Receipt Date: 20090603
  Transmission Date: 20091009
  Serious: Yes (Hospitalization)
  Sender: FDA-Public Use
  Company Number: B0548649A

PATIENT
  Sex: Female
  Weight: 67 kg

DRUGS (2)
  1. TOPOTECAN [Suspect]
     Dosage: 1.31MG THREE TIMES PER DAY
     Route: 042
     Dates: start: 20081022
  2. CARBOPLATIN [Suspect]
     Dosage: 383MG THREE TIMES PER DAY
     Route: 042
     Dates: start: 20081024

REACTIONS (1)
  - THROMBOSIS [None]
